FAERS Safety Report 5759858-6 (Version None)
Quarter: 2008Q2

REPORT INFORMATION
  Report Type: 
  Country: None (occurrence: None)
  Receive Date: 20080605
  Receipt Date: 20080529
  Transmission Date: 20081010
  Serious: Yes (Other)
  Sender: FDA-Public Use
  Company Number: PHHY2008FR09540

PATIENT
  Sex: Female

DRUGS (3)
  1. TEGRETOL [Suspect]
     Dosage: 400 MG, BID
  2. KEPPRA [Suspect]
     Dosage: 750 MG, BID
  3. RIVOTRIL [Suspect]
     Dosage: 2 MG, BID

REACTIONS (4)
  - BRAIN OPERATION [None]
  - EPIGASTRIC DISCOMFORT [None]
  - EPILEPSY [None]
  - FALL [None]
